FAERS Safety Report 6356601-7 (Version None)
Quarter: 2009Q3

REPORT INFORMATION
  Report Type: 
  Country: None (occurrence: None)
  Receive Date: 20090911
  Receipt Date: 20090911
  Transmission Date: 20100115
  Serious: No
  Sender: FDA-Public Use
  Company Number: None

PATIENT
  Age: 58 Year
  Sex: Male
  Weight: 146.96 kg

DRUGS (1)
  1. PIROXICAM [Suspect]
     Indication: PAIN
     Dosage: 20 MG EVERY DAY PO
     Route: 048
     Dates: start: 20090204, end: 20090909

REACTIONS (2)
  - ECCHYMOSIS [None]
  - HAEMORRHAGE [None]
